FAERS Safety Report 4850743-0 (Version None)
Quarter: 2005Q4

REPORT INFORMATION
  Report Type: 
  Country: None (occurrence: None)
  Receive Date: 20051212
  Receipt Date: 20051130
  Transmission Date: 20060501
  Serious: Yes (Hospitalization)
  Sender: FDA-Public Use
  Company Number: SE-BRISTOL-MYERS SQUIBB COMPANY-13199336

PATIENT
  Age: 47 Year
  Sex: Male

DRUGS (5)
  1. ABILIFY [Suspect]
     Indication: SCHIZOPHRENIA
     Route: 048
     Dates: start: 20040906
  2. HALDOL [Concomitant]
  3. LITAREX [Concomitant]
  4. ZOPIKLON [Concomitant]
  5. DISIPAL [Concomitant]

REACTIONS (2)
  - CEREBRAL INFARCTION [None]
  - TRANSIENT ISCHAEMIC ATTACK [None]
